FAERS Safety Report 4877497-6 (Version None)
Quarter: 2006Q1

REPORT INFORMATION
  Report Type: 
  Country: None (occurrence: None)
  Receive Date: 20060109
  Receipt Date: 20051229
  Transmission Date: 20060701
  Serious: Yes (Other)
  Sender: FDA-Public Use
  Company Number: 2005141717

PATIENT
  Age: 49 Year
  Sex: Female

DRUGS (4)
  1. LYRICA [Suspect]
     Indication: INTERVERTEBRAL DISC PROTRUSION
     Dosage: 150 MG (50 MG, 3 IN 1 D), ORAL
     Route: 048
  2. LYRICA [Suspect]
     Indication: RADICULOPATHY
     Dosage: 150 MG (50 MG, 3 IN 1 D), ORAL
     Route: 048
  3. ULTRAM [Concomitant]
  4. ARTHROTEC [Concomitant]

REACTIONS (4)
  - BLISTER [None]
  - EYE SWELLING [None]
  - RASH [None]
  - SWELLING FACE [None]
